FAERS Safety Report 15723390 (Version 2)
Quarter: 2019Q3

REPORT INFORMATION
  Report Type: Spontaneous
  Country: US (occurrence: US)
  Receive Date: 20181214
  Receipt Date: 20190703
  Transmission Date: 20191004
  Serious: No
  Sender: FDA-Public Use
  Company Number: US-SA-2018SA337320

PATIENT
  Age: 33 Year
  Sex: Female

DRUGS (1)
  1. DUPIXENT [Suspect]
     Active Substance: DUPILUMAB
     Indication: ASTHMA
     Dosage: 600 MG, 1X
     Route: 058

REACTIONS (4)
  - Injection site swelling [Not Recovered/Not Resolved]
  - Eczema [Unknown]
  - Injection site reaction [Not Recovered/Not Resolved]
  - Injection site erythema [Not Recovered/Not Resolved]
